FAERS Safety Report 24602377 (Version 6)
Quarter: 2025Q4

REPORT INFORMATION
  Report Type: Spontaneous
  Country: CA (occurrence: CA)
  Receive Date: 20241111
  Receipt Date: 20251125
  Transmission Date: 20260117
  Serious: Yes (Hospitalization, Other)
  Sender: JUBILANT
  Company Number: None

PATIENT
  Age: 57 Year
  Sex: Male

DRUGS (7)
  1. CITALOPRAM HYDROBROMIDE [Suspect]
     Active Substance: CITALOPRAM HYDROBROMIDE
     Indication: Antipsychotic therapy
     Dosage: 40 MG, ONCE PER DAY
     Route: 065
  2. QUETIAPINE FUMARATE [Suspect]
     Active Substance: QUETIAPINE FUMARATE
     Indication: Antipsychotic therapy
     Dosage: 400 MG, ONCE PER DAY
     Route: 065
  3. ARIPIPRAZOLE [Suspect]
     Active Substance: ARIPIPRAZOLE
     Indication: Antipsychotic therapy
     Dosage: 10 MG, ONCE PER DAY
     Route: 065
  4. DULOXETINE [Suspect]
     Active Substance: DULOXETINE
     Indication: Antipsychotic therapy
     Dosage: 120 MG, ONCE PER DAY
     Route: 065
  5. ZOPICLONE [Suspect]
     Active Substance: ZOPICLONE
     Indication: Antipsychotic therapy
     Dosage: 7.5 MG, ONCE PER DAY
     Route: 065
  6. MIRTAZAPINE [Suspect]
     Active Substance: MIRTAZAPINE
     Indication: Antipsychotic therapy
     Dosage: 30 MG, ONCE PER DAY
     Route: 065
  7. BUPRENORPHINE\NALOXONE [Suspect]
     Active Substance: BUPRENORPHINE\NALOXONE
     Indication: Back pain
     Dosage: UNK, UNK
     Route: 065

REACTIONS (5)
  - Dementia [Recovered/Resolved]
  - Overdose [Recovered/Resolved]
  - Delirium [Recovering/Resolving]
  - Acute kidney injury [Recovering/Resolving]
  - Rhabdomyolysis [Recovering/Resolving]
